FAERS Safety Report 7268495-6 (Version None)
Quarter: 2011Q1

REPORT INFORMATION
  Report Type: 
  Country: None (occurrence: None)
  Receive Date: 20110121
  Receipt Date: 20110113
  Transmission Date: 20110831
  Serious: Yes (Hospitalization)
  Sender: FDA-Public Use
  Company Number: 2010MA005426

PATIENT
  Age: 84 Year
  Sex: Male

DRUGS (4)
  1. CON MEDS [Concomitant]
  2. DICLOFENAC SODIUM [Suspect]
     Indication: ANALGESIC THERAPY
     Dosage: 1200 MG;PO
     Route: 048
  3. PRADAXA [Suspect]
     Indication: THROMBOSIS PROPHYLAXIS
     Dosage: 150 MG;PO
     Route: 048
  4. PREV MEDS [Concomitant]

REACTIONS (2)
  - RECTAL HAEMORRHAGE [None]
  - PULMONARY EMBOLISM [None]
